FAERS Safety Report 8481315-7 (Version None)
Quarter: 2012Q3

REPORT INFORMATION
  Report Type: 
  Country: None (occurrence: None)
  Receive Date: 20120702
  Receipt Date: 20120626
  Transmission Date: 20120928
  Serious: Yes (Death)
  Sender: FDA-Public Use
  Company Number: ES-ELI_LILLY_AND_COMPANY-ES201206008711

PATIENT
  Sex: Female
  Weight: 66 kg

DRUGS (5)
  1. LOSARTAN POTASSIUM [Concomitant]
     Indication: HYPERTENSION
     Dosage: 2 MG, QD
     Route: 048
  2. DIGOXIN [Concomitant]
     Indication: TACHYCARDIA
     Dosage: 0.25 MG, UNK
     Route: 048
  3. DURAGESIC-100 [Concomitant]
     Indication: BACK PAIN
     Dosage: 37 UG, OTHER
     Route: 062
  4. FORTEO [Suspect]
     Indication: OSTEOPOROSIS
     Dosage: 20 UG, QD
     Route: 058
     Dates: start: 20111222, end: 20120623
  5. GABAPENTIN [Concomitant]
     Indication: BACK PAIN
     Dosage: 300 MG, QD
     Route: 048

REACTIONS (1)
  - POLYCYTHAEMIA VERA [None]
